FAERS Safety Report 15650198 (Version 2)
Quarter: 2018Q4

REPORT INFORMATION
  Report Type: Report from Study
  Country: US (occurrence: US)
  Receive Date: 20181123
  Receipt Date: 20181204
  Transmission Date: 20190205
  Serious: Yes (Hospitalization, Other)
  Sender: FDA-Public Use
  Company Number: US-BRISTOL-MYERS SQUIBB COMPANY-BMS-2018-109158

PATIENT
  Age: 59 Year
  Sex: Female
  Weight: 50.9 kg

DRUGS (3)
  1. CABOZANTINIB [Suspect]
     Active Substance: CABOZANTINIB
     Indication: PRODUCT USED FOR UNKNOWN INDICATION
     Dosage: 20 MG, QD
     Route: 048
     Dates: start: 20181030, end: 20181030
  2. NIVOLUMAB [Suspect]
     Active Substance: NIVOLUMAB
     Indication: UTERINE CANCER
     Dosage: 240 MG, Q2WK
     Route: 042
     Dates: start: 20181017, end: 20181017
  3. CABOZANTINIB [Suspect]
     Active Substance: CABOZANTINIB
     Indication: UTERINE CANCER
     Dosage: 40 MG, QD
     Route: 048
     Dates: start: 20181017, end: 20181029

REACTIONS (4)
  - Hypokalaemia [Not Recovered/Not Resolved]
  - Diarrhoea [Not Recovered/Not Resolved]
  - Nausea [Not Recovered/Not Resolved]
  - Clostridium difficile infection [Unknown]

NARRATIVE: CASE EVENT DATE: 20181023
